FAERS Safety Report 18467980 (Version 10)
Quarter: 2025Q3

REPORT INFORMATION
  Report Type: Spontaneous
  Country: US (occurrence: US)
  Receive Date: 20201105
  Receipt Date: 20250922
  Transmission Date: 20251020
  Serious: Yes (Hospitalization, Other)
  Sender: PFIZER
  Company Number: US-PFIZER INC-2020281185

PATIENT
  Age: 62 Year
  Sex: Male

DRUGS (8)
  1. XELJANZ XR [Suspect]
     Active Substance: TOFACITINIB CITRATE
     Indication: Rheumatoid arthritis
     Dosage: 11 MG, 1X/DAY
     Route: 048
     Dates: start: 20200717
  2. XELJANZ XR [Suspect]
     Active Substance: TOFACITINIB CITRATE
     Dosage: 11 MG, 1X/DAY
     Route: 048
     Dates: start: 20221025
  3. XELJANZ XR [Suspect]
     Active Substance: TOFACITINIB CITRATE
     Dosage: 11 MG, 1X/DAY
     Route: 048
     Dates: start: 20241116
  4. XELJANZ XR [Suspect]
     Active Substance: TOFACITINIB CITRATE
     Dosage: 11 MG
     Route: 048
     Dates: start: 20241116
  5. XELJANZ XR [Suspect]
     Active Substance: TOFACITINIB CITRATE
     Dosage: 11 MG TABLET BY MOUTH DAILY
     Route: 048
     Dates: start: 20241116
  6. XELJANZ XR [Suspect]
     Active Substance: TOFACITINIB CITRATE
     Dosage: 11 MG, DAILY
     Route: 048
  7. XELJANZ XR [Suspect]
     Active Substance: TOFACITINIB CITRATE
     Dosage: TAKE 1 TABLET BY MOUTH ONCE A DAY
     Route: 048
     Dates: start: 20241116
  8. PREDNISONE [Suspect]
     Active Substance: PREDNISONE

REACTIONS (15)
  - Sepsis [Recovered/Resolved]
  - Nerve injury [Unknown]
  - Pain in extremity [Unknown]
  - Condition aggravated [Unknown]
  - Pain [Recovering/Resolving]
  - Hypersomnia [Unknown]
  - Diarrhoea [Unknown]
  - Dysuria [Unknown]
  - Urinary hesitation [Unknown]
  - Fall [Unknown]
  - Malaise [Unknown]
  - Melanocytic naevus [Not Recovered/Not Resolved]
  - Urinary tract infection [Recovering/Resolving]
  - Eye contusion [Unknown]
  - Product dose omission in error [Unknown]

NARRATIVE: CASE EVENT DATE: 20210101
